FAERS Safety Report 17185437 (Version 1)
Quarter: 2019Q4

REPORT INFORMATION
  Report Type: Spontaneous
  Country: US (occurrence: US)
  Receive Date: 20191220
  Receipt Date: 20191220
  Transmission Date: 20200122
  Serious: No
  Sender: FDA-Public Use
  Company Number: US-MALLINCKRODT-T201805183

PATIENT
  Sex: Female

DRUGS (2)
  1. FENTANYL TRANSDERMAL SYSTEM [Suspect]
     Active Substance: FENTANYL
     Indication: CANCER PAIN
     Dosage: 25MCG/HR AS NEEDED EVERY 3, 4 OR 5 DAYS
     Route: 062
     Dates: start: 2018
  2. CAPECITABINE. [Concomitant]
     Active Substance: CAPECITABINE
     Indication: NEOPLASM MALIGNANT
     Dosage: UNK
     Dates: start: 2018

REACTIONS (4)
  - Weight increased [Unknown]
  - Swelling face [Unknown]
  - Headache [Unknown]
  - Flushing [Unknown]

NARRATIVE: CASE EVENT DATE: 2018
